FAERS Safety Report 7555165-X (Version None)
Quarter: 2011Q2

REPORT INFORMATION
  Report Type: 
  Country: None (occurrence: None)
  Receive Date: 20110617
  Receipt Date: 20110324
  Transmission Date: 20111010
  Serious: No
  Sender: FDA-Public Use
  Company Number: US-MYLANLABS-2011S1006393

PATIENT
  Sex: Female

DRUGS (6)
  1. RISPERIDONE [Suspect]
     Indication: DEMENTIA
     Dosage: ALSO, PRN DURING TIMES OF AGGITATION
     Route: 048
  2. RISPERIDONE [Suspect]
     Indication: AGITATION
     Dosage: ALSO, PRN DURING TIMES OF AGGITATION
     Route: 048
  3. RISPERIDONE [Suspect]
     Dosage: ALSO, PRN DURING TIMES OF AGGITATION
     Route: 048
  4. RISPERIDONE [Suspect]
     Dosage: ALSO, PRN DURING TIMES OF AGGITATION
     Route: 048
  5. RISPERIDONE [Suspect]
     Indication: ANXIETY
     Dosage: ALSO, PRN DURING TIMES OF AGGITATION
     Route: 048
  6. RISPERIDONE [Suspect]
     Dosage: ALSO, PRN DURING TIMES OF AGGITATION
     Route: 048

REACTIONS (4)
  - DRUG INEFFECTIVE FOR UNAPPROVED INDICATION [None]
  - AGITATION [None]
  - DEMENTIA [None]
  - ANXIETY [None]
